FAERS Safety Report 21974525 (Version 2)
Quarter: 2023Q1

REPORT INFORMATION
  Report Type: Spontaneous
  Country: BR (occurrence: BR)
  Receive Date: 20230209
  Receipt Date: 20230310
  Transmission Date: 20230418
  Serious: Yes (Other)
  Sender: FDA-Public Use
  Company Number: BR-TEVA BRAZIL-2023-BR-2852709

PATIENT
  Sex: Male

DRUGS (1)
  1. ABIRATERONE ACETATE [Suspect]
     Active Substance: ABIRATERONE ACETATE
     Indication: Hormone-refractory prostate cancer
     Route: 065

REACTIONS (3)
  - Hyperaldosteronism [Unknown]
  - Hypokalaemia [Unknown]
  - Ascending flaccid paralysis [Unknown]
